FAERS Safety Report 22304376 (Version 1)
Quarter: 2023Q2

REPORT INFORMATION
  Report Type: Spontaneous
  Country: US (occurrence: None)
  Receive Date: 20230509
  Receipt Date: 20230509
  Transmission Date: 20230721
  Serious: No
  Sender: FDA-Public Use
  Company Number: None

PATIENT
  Age: 55 Year
  Sex: Female
  Weight: 63 kg

DRUGS (8)
  1. GABAPENTIN [Suspect]
     Active Substance: GABAPENTIN
     Indication: Neuropathy peripheral
     Dosage: OTHER QUANTITY : 1 CAPSULE(S);?FREQUENCY : 3 TIMES A DAY;?
     Route: 048
     Dates: start: 202303, end: 20230310
  2. GABAPENTIN [Suspect]
     Active Substance: GABAPENTIN
     Indication: Post procedural complication
  3. GABAPENTIN [Suspect]
     Active Substance: GABAPENTIN
     Indication: Ulnar nerve injury
  4. GABAPENTIN [Suspect]
     Active Substance: GABAPENTIN
     Indication: Iatrogenic injury
  5. GABAPENTIN [Suspect]
     Active Substance: GABAPENTIN
     Indication: Neuropathy peripheral
     Dosage: OTHER QUANTITY : 1 CAPSULE(S);?FREQUENCY : 3 TIMES A DAY;?
     Route: 048
     Dates: start: 202303, end: 20230320
  6. GABAPENTIN [Suspect]
     Active Substance: GABAPENTIN
     Indication: Ulnar nerve injury
  7. GABAPENTIN [Suspect]
     Active Substance: GABAPENTIN
     Indication: Iatrogenic injury
  8. GABAPENTIN [Suspect]
     Active Substance: GABAPENTIN
     Indication: Post procedural complication

REACTIONS (8)
  - Complex regional pain syndrome [None]
  - Symptom recurrence [None]
  - Drug ineffective [None]
  - Product substitution issue [None]
  - Therapeutic response changed [None]
  - Self-medication [None]
  - Intentional product use issue [None]
  - Migraine [None]

NARRATIVE: CASE EVENT DATE: 20230309
